FAERS Safety Report 17288852 (Version 1)
Quarter: 2020Q1

REPORT INFORMATION
  Report Type: Spontaneous
  Country: US (occurrence: US)
  Receive Date: 20200120
  Receipt Date: 20200120
  Transmission Date: 20200409
  Serious: No
  Sender: FDA-Public Use
  Company Number: US-INSMED, INC.-US-INS-19-03793

PATIENT
  Age: 74 Year

DRUGS (2)
  1. LAMIRA NEBULIZER SYSTEM [Suspect]
     Active Substance: DEVICE
  2. ARIKAYCE [Suspect]
     Active Substance: AMIKACIN
     Indication: BRONCHIECTASIS
     Route: 055
     Dates: start: 20191101, end: 201911

REACTIONS (3)
  - Laryngeal pain [Unknown]
  - Off label use [Unknown]
  - Aphonia [Unknown]

NARRATIVE: CASE EVENT DATE: 201911
